FAERS Safety Report 11049082 (Version 1)
Quarter: 2015Q2

REPORT INFORMATION
  Report Type: Spontaneous
  Country: US (occurrence: US)
  Receive Date: 20150420
  Receipt Date: 20150420
  Transmission Date: 20150821
  Serious: No
  Sender: FDA-Public Use
  Company Number: US-ELI_LILLY_AND_COMPANY-US201504003844

PATIENT
  Sex: Female
  Weight: 59.86 kg

DRUGS (2)
  1. ADCIRCA [Suspect]
     Active Substance: TADALAFIL
     Indication: PRODUCT USED FOR UNKNOWN INDICATION
     Dosage: UNK, UNKNOWN
     Route: 065
  2. TYVASO [Suspect]
     Active Substance: TREPROSTINIL
     Indication: PULMONARY ARTERIAL HYPERTENSION
     Dosage: 0.6 MG/ML, 3-4 BREATHS, QID
     Route: 055
     Dates: start: 20140710

REACTIONS (4)
  - Visual acuity reduced [Unknown]
  - Stress [Unknown]
  - Retching [Unknown]
  - Weight fluctuation [Unknown]
